FAERS Safety Report 10362403 (Version 1)
Quarter: 2014Q3

REPORT INFORMATION
  Report Type: Spontaneous
  Country: US (occurrence: None)
  Receive Date: 20140723
  Receipt Date: 20140723
  Transmission Date: 20150326
  Serious: Yes (Other)
  Sender: FDA-Public Use
  Company Number: 2014SA011831

PATIENT
  Age: 71 Year
  Sex: Female

DRUGS (1)
  1. AUBAGIO [Suspect]
     Active Substance: TERIFLUNOMIDE
     Indication: MULTIPLE SCLEROSIS
     Dosage: 7 MILLIGRAM(S), TABLET, COATED, ORAL
     Route: 048

REACTIONS (4)
  - Alopecia [None]
  - Osteoporosis [None]
  - Multiple sclerosis [None]
  - Limb discomfort [None]
